FAERS Safety Report 22051880 (Version 1)
Quarter: 2023Q1

REPORT INFORMATION
  Report Type: Spontaneous
  Country: US (occurrence: US)
  Receive Date: 20230302
  Receipt Date: 20230302
  Transmission Date: 20230417
  Serious: Yes (Other)
  Sender: FDA-Public Use
  Company Number: US-BAUSCHBL-2023BNL001685

PATIENT
  Age: 61 Year
  Sex: Male
  Weight: 86.260 kg

DRUGS (4)
  1. LUMIFY [Suspect]
     Active Substance: BRIMONIDINE TARTRATE
     Indication: Ocular hyperaemia
     Route: 047
     Dates: end: 20230102
  2. LUMIFY [Suspect]
     Active Substance: BRIMONIDINE TARTRATE
  3. VIGAMOX [Concomitant]
     Active Substance: MOXIFLOXACIN HYDROCHLORIDE
     Indication: Product used for unknown indication
  4. BACITRACIN [Concomitant]
     Active Substance: BACITRACIN
     Indication: Product used for unknown indication

REACTIONS (1)
  - Ulcerative keratitis [Unknown]

NARRATIVE: CASE EVENT DATE: 20230103
